FAERS Safety Report 23958761 (Version 3)
Quarter: 2024Q3

REPORT INFORMATION
  Report Type: Report from Study
  Country: US (occurrence: US)
  Receive Date: 20240610
  Receipt Date: 20240724
  Transmission Date: 20241017
  Serious: Yes (Hospitalization)
  Sender: JOHNSON AND JOHNSON
  Company Number: US-JNJFOC-20240608004

PATIENT
  Age: 82 Year
  Sex: Male

DRUGS (12)
  1. APALUTAMIDE [Suspect]
     Active Substance: APALUTAMIDE
     Indication: Prostate cancer
     Route: 048
  2. APALUTAMIDE [Suspect]
     Active Substance: APALUTAMIDE
     Route: 048
     Dates: start: 20240105
  3. APALUTAMIDE [Suspect]
     Active Substance: APALUTAMIDE
     Dosage: 4 TABS A DAY
     Route: 048
     Dates: start: 20240604, end: 20240610
  4. COREG [Concomitant]
     Active Substance: CARVEDILOL
     Indication: Myocardial infarction
     Dates: start: 2002
  5. SIMVASTATIN [Concomitant]
     Active Substance: SIMVASTATIN
     Indication: Myocardial infarction
     Dosage: START DATE: YEARS AGO
     Dates: start: 2002
  6. LORATADINE [Concomitant]
     Active Substance: LORATADINE
     Indication: Seasonal allergy
     Dosage: YEARS AGO
     Route: 050
  7. METOPROLOL [Concomitant]
     Active Substance: METOPROLOL
     Indication: Myocardial infarction
     Dosage: YEARS AGO
     Route: 050
  8. ELIGARD [Concomitant]
     Active Substance: LEUPROLIDE ACETATE
     Indication: Prostate cancer
     Dates: start: 2023
  9. PROLIA [Concomitant]
     Active Substance: DENOSUMAB
     Indication: Prostate cancer
     Dates: start: 2023
  10. SYMBICORT [Concomitant]
     Active Substance: BUDESONIDE\FORMOTEROL FUMARATE DIHYDRATE
     Indication: Chronic obstructive pulmonary disease
     Dates: start: 2002
  11. ENTRESTO [Concomitant]
     Active Substance: SACUBITRIL\VALSARTAN
     Indication: Myocardial infarction
     Route: 050
     Dates: start: 20190207
  12. CLOPIDOGREL [Concomitant]
     Active Substance: CLOPIDOGREL BISULFATE
     Indication: Myocardial infarction
     Route: 050
     Dates: start: 20190207

REACTIONS (5)
  - Chronic obstructive pulmonary disease [Unknown]
  - Fatigue [Unknown]
  - Arthralgia [Unknown]
  - Decreased appetite [Unknown]
  - Weight decreased [Unknown]
